FAERS Safety Report 6530953-7 (Version None)
Quarter: 2010Q1

REPORT INFORMATION
  Report Type: 
  Country: None (occurrence: None)
  Receive Date: 20100108
  Receipt Date: 20090713
  Transmission Date: 20100710
  Serious: No
  Sender: FDA-Public Use
  Company Number: A0796649A

PATIENT
  Age: 82 Year
  Sex: Female

DRUGS (4)
  1. LOVAZA [Suspect]
     Indication: BLOOD CHOLESTEROL INCREASED
     Dosage: 2CAP PER DAY
     Route: 048
     Dates: start: 20090709, end: 20090711
  2. UNKNOWN MEDICATION [Concomitant]
     Indication: DIURETIC THERAPY
  3. LOTREL [Concomitant]
  4. UNKNOWN MEDICATION [Concomitant]

REACTIONS (6)
  - AURICULAR SWELLING [None]
  - ERYTHEMA [None]
  - EYE SWELLING [None]
  - OROPHARYNGEAL PAIN [None]
  - PYREXIA [None]
  - SWELLING FACE [None]
